FAERS Safety Report 6825568-7 (Version None)
Quarter: 2010Q3

REPORT INFORMATION
  Report Type: 
  Country: None (occurrence: None)
  Receive Date: 20100708
  Receipt Date: 20080621
  Transmission Date: 20110219
  Serious: No
  Sender: FDA-Public Use
  Company Number: US-PFIZER INC-2006142910

PATIENT
  Sex: Male
  Weight: 99.79 kg

DRUGS (7)
  1. CHANTIX [Suspect]
     Indication: SMOKING CESSATION THERAPY
     Route: 048
     Dates: start: 20061105
  2. ACIPHEX [Concomitant]
  3. NIASPAN [Concomitant]
  4. COREG [Concomitant]
  5. HYDROCHLOROTHIAZIDE [Concomitant]
  6. NEURONTIN [Concomitant]
  7. TERAZOSIN HCL [Concomitant]

REACTIONS (4)
  - ABDOMINAL DISCOMFORT [None]
  - DRUG PRESCRIBING ERROR [None]
  - FATIGUE [None]
  - NAUSEA [None]
